FAERS Safety Report 18366274 (Version 3)
Quarter: 2020Q4

REPORT INFORMATION
  Report Type: Report from Study
  Country: US (occurrence: US)
  Receive Date: 20201009
  Receipt Date: 20201124
  Transmission Date: 20210114
  Serious: No
  Sender: FDA-Public Use
  Company Number: US-JNJFOC-20200952423

PATIENT
  Age: 57 Year
  Sex: Male

DRUGS (4)
  1. SELEXIPAG [Suspect]
     Active Substance: SELEXIPAG
     Dosage: 200MCG IN AM AND 400MCG IN PM
     Route: 048
     Dates: start: 20201023
  2. SELEXIPAG [Suspect]
     Active Substance: SELEXIPAG
     Indication: PULMONARY ARTERIAL HYPERTENSION
     Dosage: 400 MCG BID
     Route: 048
     Dates: start: 20200910
  3. SELEXIPAG [Suspect]
     Active Substance: SELEXIPAG
     Dosage: 400MCG IN AM AND 600MCG IN PM
     Route: 048
  4. SELEXIPAG [Suspect]
     Active Substance: SELEXIPAG
     Dosage: 600 MCG, TWICE DAILY
     Route: 048
     Dates: start: 20200911

REACTIONS (10)
  - Therapeutic response unexpected [Recovered/Resolved]
  - Restless legs syndrome [Unknown]
  - Drug intolerance [Unknown]
  - Muscle spasms [Unknown]
  - Nausea [Unknown]
  - Diarrhoea [Unknown]
  - Musculoskeletal stiffness [Unknown]
  - Headache [Unknown]
  - Balance disorder [Unknown]
  - Gastroenteritis viral [Unknown]

NARRATIVE: CASE EVENT DATE: 20201019
